FAERS Safety Report 21680713 (Version 2)
Quarter: 2022Q4

REPORT INFORMATION
  Report Type: Spontaneous
  Country: US (occurrence: US)
  Receive Date: 20221205
  Receipt Date: 20221206
  Transmission Date: 20230113
  Serious: Yes (Death, Life-Threatening, Other)
  Sender: FDA-Public Use
  Company Number: US-HORIZON THERAPEUTICS-HZN-2022-009270

PATIENT

DRUGS (5)
  1. RAYOS [Suspect]
     Active Substance: PREDNISONE
     Indication: Morvan syndrome
     Dosage: 10 MG DAILY
     Route: 065
  2. RITUXIMAB [Suspect]
     Active Substance: RITUXIMAB
     Indication: Morvan syndrome
     Route: 065
  3. METHYLPREDNISOLONE [Suspect]
     Active Substance: METHYLPREDNISOLONE
     Indication: Morvan syndrome
     Dosage: 10 MG, EVERY 1 DAY
     Route: 065
  4. IMMUNOGLOBULINS [Concomitant]
     Indication: Morvan syndrome
  5. AZATHIOPRINE [Concomitant]
     Active Substance: AZATHIOPRINE
     Indication: Morvan syndrome
     Dosage: UNK
     Dates: end: 2018

REACTIONS (4)
  - Pyelonephritis [Fatal]
  - Sepsis [Fatal]
  - Urinary tract infection [Fatal]
  - Drug effective for unapproved indication [Unknown]
